FAERS Safety Report 14147471 (Version 1)
Quarter: 2017Q4

REPORT INFORMATION
  Report Type: Spontaneous
  Country: US (occurrence: US)
  Receive Date: 20171101
  Receipt Date: 20171101
  Transmission Date: 20180321
  Serious: No
  Sender: FDA-Public Use
  Company Number: US-ASTRAZENECA-2017SF08841

PATIENT
  Age: 66 Year
  Sex: Female

DRUGS (2)
  1. PRILOSEC [Suspect]
     Active Substance: OMEPRAZOLE MAGNESIUM
     Dosage: POSSIBLY 20 MG
     Route: 048
  2. PULMICORT FLEXHALER [Suspect]
     Active Substance: BUDESONIDE
     Indication: ASTHMA
     Route: 055

REACTIONS (4)
  - Drug dose omission [Unknown]
  - Rheumatoid arthritis [Unknown]
  - Intentional device misuse [Unknown]
  - Asthma [Unknown]

NARRATIVE: CASE EVENT DATE: 2013
